FAERS Safety Report 24088697 (Version 1)
Quarter: 2024Q3

REPORT INFORMATION
  Report Type: Spontaneous
  Country: FR (occurrence: FR)
  Receive Date: 20240715
  Receipt Date: 20240715
  Transmission Date: 20241016
  Serious: Yes (Hospitalization, Other)
  Sender: RHYTHM PHARMACEUTICALS
  Company Number: FR-Rhythm Pharmaceuticals, Inc.-2024RHM000253

PATIENT
  Age: 42 Year
  Sex: Female
  Weight: 91.2 kg

DRUGS (11)
  1. IMCIVREE [Suspect]
     Active Substance: SETMELANOTIDE
     Indication: Obesity
     Route: 058
     Dates: start: 20240405
  2. IMCIVREE [Suspect]
     Active Substance: SETMELANOTIDE
     Route: 058
  3. LEVOTHYROXINE [Concomitant]
     Active Substance: LEVOTHYROXINE\LEVOTHYROXINE SODIUM
     Indication: Hypopituitarism
     Dosage: 1 TABLET IN THE MORNING ON AN EMPTY STOMACH
     Route: 065
  4. DESMOPRESSIN ACETATE [Concomitant]
     Active Substance: DESMOPRESSIN ACETATE
     Indication: Product used for unknown indication
     Route: 065
  5. HYDROCORTISONE [Concomitant]
     Active Substance: HYDROCORTISONE\HYDROCORTISONE ACETATE
     Indication: Product used for unknown indication
     Dosage: 1.5 OR 2 TABLETS IN THE MORNING + 0.5 OR 1 TABLET IN THE LUNCHTIME + 0.5 TABLET IN THE AFTERNOON
     Route: 065
  6. COLPRONE [Concomitant]
     Active Substance: MEDROGESTONE
     Indication: Product used for unknown indication
     Dosage: 1 TABLET PER DAY - 2 TABLETS FROM DAY 1 TO DAY 25
     Route: 065
  7. COLPRONE [Concomitant]
     Active Substance: MEDROGESTONE
     Dosage: 1 TABLET PER DAY - 2 TABLETS FROM DAY 1 TO DAY 2
     Route: 065
  8. ESTRADIOL [Concomitant]
     Active Substance: ESTRADIOL
     Indication: Product used for unknown indication
     Dosage: 1 PRESSURE FROM DAY 1 TO DAY 25
     Route: 065
  9. ZOLMITRIPTAN [Concomitant]
     Active Substance: ZOLMITRIPTAN
     Indication: Product used for unknown indication
     Dosage: 1 BOX PER MONTH
     Route: 065
  10. AMITRIPTYLINE HYDROCHLORIDE [Concomitant]
     Active Substance: AMITRIPTYLINE HYDROCHLORIDE
     Indication: Product used for unknown indication
     Route: 065
  11. OZEMPIC [Concomitant]
     Active Substance: SEMAGLUTIDE
     Indication: Sleep disorder
     Dosage: 1 INJECTION PER WEEK
     Route: 065
     Dates: end: 20240703

REACTIONS (6)
  - Hypokalaemia [Unknown]
  - Tonsillitis [Recovered/Resolved]
  - Infection [Recovered/Resolved]
  - Off label use [Unknown]
  - Headache [Not Recovered/Not Resolved]
  - Nausea [Not Recovered/Not Resolved]

NARRATIVE: CASE EVENT DATE: 20240405
